FAERS Safety Report 6145878-9 (Version None)
Quarter: 2009Q2

REPORT INFORMATION
  Report Type: 
  Country: None (occurrence: None)
  Receive Date: 20090407
  Receipt Date: 20090401
  Transmission Date: 20091009
  Serious: Yes (Hospitalization, Other)
  Sender: FDA-Public Use
  Company Number: DE-ROCHE-457571

PATIENT
  Sex: Female
  Weight: 68 kg

DRUGS (1)
  1. LARIAM [Suspect]
     Indication: MALARIA PROPHYLAXIS
     Dosage: DOSAGE REGIMEN REPORTED AS FOUR TABS IN TOTAL. WEEKLY DOSAGE.
     Route: 065
     Dates: start: 20060530, end: 20060620

REACTIONS (26)
  - ABNORMAL DREAMS [None]
  - AGITATION [None]
  - ANXIETY [None]
  - ASTHENIA [None]
  - CARDIOVASCULAR DISORDER [None]
  - COORDINATION ABNORMAL [None]
  - DEPRESSION [None]
  - DISTURBANCE IN ATTENTION [None]
  - DYSPEPSIA [None]
  - FATIGUE [None]
  - FEELING ABNORMAL [None]
  - FORMICATION [None]
  - HEADACHE [None]
  - MALAISE [None]
  - MENTAL DISORDER [None]
  - MUSCLE TWITCHING [None]
  - NIGHT SWEATS [None]
  - OEDEMA PERIPHERAL [None]
  - PARAESTHESIA [None]
  - PYREXIA [None]
  - SLEEP DISORDER [None]
  - TACHYCARDIA [None]
  - TINNITUS [None]
  - UNEVALUABLE EVENT [None]
  - UPPER RESPIRATORY TRACT INFECTION [None]
  - VERTIGO [None]
